FAERS Safety Report 7149028-1 (Version None)
Quarter: 2010Q4

REPORT INFORMATION
  Report Type: 
  Country: None (occurrence: None)
  Receive Date: 20101209
  Receipt Date: 20101129
  Transmission Date: 20110411
  Serious: No
  Sender: FDA-Public Use
  Company Number: US-B.I. PHARMACEUTICALS,INC./RIDGEFIELD-2010-BP-13379BP

PATIENT
  Age: 29 Year
  Sex: Female

DRUGS (1)
  1. ZANTAC 150 [Suspect]
     Indication: DYSPEPSIA
     Dosage: 1 TAB AS NEEDED
     Route: 048
     Dates: start: 20101101

REACTIONS (1)
  - DRUG INEFFECTIVE [None]
